FAERS Safety Report 16926893 (Version 7)
Quarter: 2020Q1

REPORT INFORMATION
  Report Type: Spontaneous
  Country: US (occurrence: US)
  Receive Date: 20191016
  Receipt Date: 20200214
  Transmission Date: 20200409
  Serious: No
  Sender: FDA-Public Use
  Company Number: US-ACTELION-A-NJ2019-196988

PATIENT
  Age: 44 Year
  Sex: Female
  Weight: 77.1 kg

DRUGS (8)
  1. COUMADIN [Concomitant]
     Active Substance: WARFARIN SODIUM
  2. FAMOTIDINE. [Concomitant]
     Active Substance: FAMOTIDINE
  3. POTASSIUM [Concomitant]
     Active Substance: POTASSIUM
     Dosage: 40 MEQ, QD
  4. TADALAFIL. [Concomitant]
     Active Substance: TADALAFIL
  5. REMODULIN [Concomitant]
     Active Substance: TREPROSTINIL
  6. ADEMPAS [Concomitant]
     Active Substance: RIOCIGUAT
     Dosage: 1 MG
  7. OPSUMIT [Suspect]
     Active Substance: MACITENTAN
     Indication: PULMONARY ARTERIAL HYPERTENSION
     Dosage: 10 MG, QD
     Route: 048
  8. WARFARIN [Concomitant]
     Active Substance: WARFARIN

REACTIONS (12)
  - Blood pressure decreased [Unknown]
  - Dysphonia [Unknown]
  - Pruritus [Unknown]
  - Dizziness [Unknown]
  - Productive cough [Unknown]
  - Cough [Unknown]
  - Breast pain [Unknown]
  - Dysgeusia [Unknown]
  - Drug interaction [Unknown]
  - Bacterial infection [Unknown]
  - Dyspepsia [Unknown]
  - Burning sensation [Unknown]

NARRATIVE: CASE EVENT DATE: 20191223
